FAERS Safety Report 16627785 (Version 1)
Quarter: 2019Q3

REPORT INFORMATION
  Report Type: Spontaneous
  Country: US (occurrence: US)
  Receive Date: 20190724
  Receipt Date: 20190724
  Transmission Date: 20191004
  Serious: Yes (Death, Hospitalization, Other)
  Sender: FDA-Public Use
  Company Number: US-JNJFOC-20190701509

PATIENT
  Age: 75 Year
  Sex: Female

DRUGS (9)
  1. ENBREL [Concomitant]
     Active Substance: ETANERCEPT
  2. NEURONTIN [Concomitant]
     Active Substance: GABAPENTIN
  3. XARELTO [Suspect]
     Active Substance: RIVAROXABAN
     Indication: ATRIAL FIBRILLATION
     Route: 048
  4. DIGOXIN. [Concomitant]
     Active Substance: DIGOXIN
  5. XARELTO [Suspect]
     Active Substance: RIVAROXABAN
     Indication: CEREBROVASCULAR ACCIDENT PROPHYLAXIS
  6. CHANTIX [Concomitant]
     Active Substance: VARENICLINE TARTRATE
  7. PAXIL [Concomitant]
     Active Substance: PAROXETINE HYDROCHLORIDE
  8. DILTIAZEM. [Concomitant]
     Active Substance: DILTIAZEM
  9. METOPROLOL. [Concomitant]
     Active Substance: METOPROLOL

REACTIONS (1)
  - Mesenteric haemorrhage [Fatal]
